FAERS Safety Report 8578971-1 (Version None)
Quarter: 2012Q3

REPORT INFORMATION
  Report Type: 
  Country: None (occurrence: None)
  Receive Date: 20120808
  Receipt Date: 20120806
  Transmission Date: 20120928
  Serious: Yes (Other)
  Sender: FDA-Public Use
  Company Number: US-PFIZER INC-2012191091

PATIENT
  Age: 73 Year
  Sex: Female
  Weight: 108.84 kg

DRUGS (10)
  1. CHANTIX [Suspect]
     Indication: SMOKING CESSATION THERAPY
     Dosage: UNK
     Route: 048
     Dates: start: 20120608, end: 20120101
  2. GABAPENTIN [Concomitant]
     Dosage: 600 MG, 3X/DAY
  3. BUDESONIDE [Concomitant]
     Dosage: 3 MG, 3X/DAY
  4. ALPRAZOLAM [Concomitant]
     Dosage: 0.5 MG, 2X/DAY
  5. CHANTIX [Suspect]
     Dosage: 1 MG, 2X/DAY
     Route: 048
     Dates: start: 20120101, end: 20120803
  6. ROPINIROLE [Concomitant]
     Dosage: 3 MG, 4X/DAY
  7. OMEPRAZOLE [Concomitant]
     Dosage: 20 MG, UNK
  8. ETRAVIRINE [Concomitant]
     Dosage: 4 MG, AS NEEDED
  9. BUSPIRONE [Concomitant]
     Dosage: 10 MG, 2X/DAY
  10. VALACICLOVIR [Concomitant]
     Dosage: 500 MG, 2X/DAY

REACTIONS (12)
  - ANGER [None]
  - DYSPNOEA [None]
  - ORAL MUCOSAL BLISTERING [None]
  - HEADACHE [None]
  - NAUSEA [None]
  - INSOMNIA [None]
  - AFFECT LABILITY [None]
  - HYPERAESTHESIA [None]
  - OEDEMA PERIPHERAL [None]
  - ARTHRITIS [None]
  - CRYING [None]
  - ABNORMAL DREAMS [None]
